FAERS Safety Report 16674167 (Version 4)
Quarter: 2019Q4

REPORT INFORMATION
  Report Type: Spontaneous
  Country: US (occurrence: US)
  Receive Date: 20190806
  Receipt Date: 20191118
  Transmission Date: 20200122
  Serious: Yes (Other)
  Sender: FDA-Public Use
  Company Number: US-INCYTE CORPORATION-2019IN007736

PATIENT

DRUGS (3)
  1. JAKAFI [Suspect]
     Active Substance: RUXOLITINIB
     Dosage: 15 MILLIGRAM, QD
     Route: 065
     Dates: start: 20190703
  2. JAKAFI [Suspect]
     Active Substance: RUXOLITINIB
     Indication: MYELOFIBROSIS
     Dosage: 15 MILLIGRAM, QD
     Route: 048
     Dates: start: 20190710
  3. JAKAFI [Suspect]
     Active Substance: RUXOLITINIB
     Dosage: 20 MILLIGRAM, QD
     Route: 048
     Dates: start: 20191019

REACTIONS (8)
  - Oropharyngeal pain [Unknown]
  - Bone marrow disorder [Unknown]
  - Haemoglobin decreased [Unknown]
  - Constipation [Unknown]
  - Anaemia [Unknown]
  - Off label use [Unknown]
  - Asthenia [Recovered/Resolved]
  - Oral herpes [Unknown]

NARRATIVE: CASE EVENT DATE: 20190724
